FAERS Safety Report 6175944-3 (Version None)
Quarter: 2009Q2

REPORT INFORMATION
  Report Type: 
  Country: None (occurrence: None)
  Receive Date: 20090501
  Receipt Date: 20090114
  Transmission Date: 20091009
  Serious: Yes (Hospitalization, Other)
  Sender: FDA-Public Use
  Company Number: US-PFIZER INC-2007104987

PATIENT
  Sex: Female
  Weight: 70.3 kg

DRUGS (13)
  1. DILANTIN [Interacting]
     Indication: CONVULSION
     Dosage: 100 MG, 2X/DAY
     Route: 048
     Dates: start: 19880101
  2. DILANTIN [Interacting]
  3. DILANTIN [Interacting]
     Indication: EPILEPSY
  4. DILANTIN [Suspect]
     Dosage: 50 MG, UNK
     Route: 048
     Dates: start: 19910101
  5. DILANTIN [Suspect]
  6. NEURONTIN [Suspect]
     Dosage: 100 MG, UNK
     Route: 048
     Dates: start: 19950701, end: 19950801
  7. SYNTHROID [Interacting]
     Indication: THYROIDECTOMY
  8. REMERON [Concomitant]
     Dosage: UNK
     Dates: start: 19970601
  9. TRAZODONE HCL [Concomitant]
  10. ZOLOFT [Concomitant]
  11. RESTORIL [Concomitant]
  12. NORPRAMIN [Concomitant]
  13. DESYREL [Concomitant]

REACTIONS (14)
  - ANTICONVULSANT DRUG LEVEL BELOW THERAPEUTIC [None]
  - ANTINUCLEAR ANTIBODY INCREASED [None]
  - ANTINUCLEAR ANTIBODY POSITIVE [None]
  - APHASIA [None]
  - COGNITIVE DISORDER [None]
  - CONVULSION [None]
  - DEPRESSION [None]
  - DRUG INEFFECTIVE [None]
  - DRUG INTERACTION [None]
  - DRUG LEVEL DECREASED [None]
  - INSOMNIA [None]
  - PSYCHOTIC DISORDER [None]
  - UNEVALUABLE EVENT [None]
  - WEIGHT INCREASED [None]
